FAERS Safety Report 9692657 (Version 1)
Quarter: 2013Q4

REPORT INFORMATION
  Report Type: Spontaneous
  Country: US (occurrence: US)
  Receive Date: 20131118
  Receipt Date: 20131118
  Transmission Date: 20140711
  Serious: Yes (Other)
  Sender: FDA-Public Use
  Company Number: PHEH2013US023769

PATIENT
  Age: 44 Year
  Sex: Female

DRUGS (5)
  1. GILENYA [Suspect]
     Indication: MULTIPLE SCLEROSIS
     Dosage: 0.5 MG, QD
     Route: 048
     Dates: start: 20130507
  2. TRAMADOL [Concomitant]
     Indication: PAIN
     Dosage: 50 MG, BID
     Route: 048
     Dates: start: 20120713
  3. TRAMADOL [Concomitant]
     Indication: HEADACHE
  4. AMPYRA [Concomitant]
     Indication: GAIT DISTURBANCE
     Dosage: 10 MG, BID
     Route: 048
     Dates: start: 201308
  5. MECLIZINE [Concomitant]
     Indication: VERTIGO
     Dosage: 25 MG, BID
     Route: 048
     Dates: start: 201208

REACTIONS (3)
  - Anaemia [Not Recovered/Not Resolved]
  - Leukopenia [Not Recovered/Not Resolved]
  - Urinary tract infection [Unknown]
